FAERS Safety Report 9415475 (Version 1)
Quarter: 2013Q3

REPORT INFORMATION
  Report Type: Spontaneous
  Country: US (occurrence: US)
  Receive Date: 20130723
  Receipt Date: 20130723
  Transmission Date: 20140515
  Serious: No
  Sender: FDA-Public Use
  Company Number: US-009507513-1307USA009210

PATIENT
  Sex: Female
  Weight: 57.14 kg

DRUGS (1)
  1. DESOGEN [Suspect]
     Indication: CONTRACEPTION
     Dosage: 350 MG, Q3W
     Route: 048
     Dates: start: 20130206

REACTIONS (2)
  - Metrorrhagia [Not Recovered/Not Resolved]
  - Abdominal distension [Not Recovered/Not Resolved]
